FAERS Safety Report 9020226 (Version 1)
Quarter: 2013Q1

REPORT INFORMATION
  Report Type: Spontaneous
  Country: US (occurrence: US)
  Receive Date: 20130119
  Receipt Date: 20130119
  Transmission Date: 20140127
  Serious: No
  Sender: FDA-Public Use
  Company Number: US-ALLERGAN-1209821US

PATIENT
  Sex: Female

DRUGS (2)
  1. BOTOX COSMETIC [Suspect]
     Indication: SKIN WRINKLING
     Dosage: 4 UNITS, SINGLE
     Route: 030
     Dates: start: 20120427, end: 20120427
  2. HRT [Concomitant]
     Indication: HORMONE REPLACEMENT THERAPY
     Dosage: UNK

REACTIONS (3)
  - Wrong technique in drug usage process [Unknown]
  - Off label use [Unknown]
  - Facial paresis [Unknown]
